FAERS Safety Report 24638229 (Version 1)
Quarter: 2024Q4

REPORT INFORMATION
  Report Type: Spontaneous
  Country: AU (occurrence: AU)
  Receive Date: 20241119
  Receipt Date: 20241119
  Transmission Date: 20250115
  Serious: Yes (Other)
  Sender: ALEXION PHARMACEUTICALS
  Company Number: AU-ASTRAZENECA-202411OCE007631AU

PATIENT
  Age: 58 Year
  Weight: 65 kg

DRUGS (34)
  1. DAPAGLIFLOZIN [Suspect]
     Active Substance: DAPAGLIFLOZIN
     Indication: Type 2 diabetes mellitus
     Dosage: 10 MILLIGRAM, QD
  2. DAPAGLIFLOZIN [Suspect]
     Active Substance: DAPAGLIFLOZIN
     Dosage: 10 MILLIGRAM, QD
  3. DAPAGLIFLOZIN [Suspect]
     Active Substance: DAPAGLIFLOZIN
     Dosage: 10 MILLIGRAM, QD
  4. DAPAGLIFLOZIN [Suspect]
     Active Substance: DAPAGLIFLOZIN
     Dosage: 10 MILLIGRAM, QD
  5. TELMISARTAN [Suspect]
     Active Substance: TELMISARTAN
     Indication: Hypertension
     Dosage: 40 UNK, QD
  6. TELMISARTAN [Suspect]
     Active Substance: TELMISARTAN
     Dosage: 40 UNK, QD
  7. LARODOPA [Suspect]
     Active Substance: LEVODOPA
     Indication: Prophylaxis against HIV infection
     Dosage: UNK
  8. LARODOPA [Suspect]
     Active Substance: LEVODOPA
     Dosage: UNK
     Route: 065
  9. ONDANSETRON [Suspect]
     Active Substance: ONDANSETRON
     Indication: Nausea
     Dosage: 8 MILLIGRAM, TID
  10. ONDANSETRON [Suspect]
     Active Substance: ONDANSETRON
     Dosage: 8 MILLIGRAM, TID
  11. PROCHLORPERAZINE [Suspect]
     Active Substance: PROCHLORPERAZINE
     Indication: Nausea
     Dosage: 5 MILLIGRAM, TID
  12. PROCHLORPERAZINE [Suspect]
     Active Substance: PROCHLORPERAZINE
     Dosage: 5 MILLIGRAM, TID
  13. BENSERAZIDE [Suspect]
     Active Substance: BENSERAZIDE
     Indication: Parkinsonism
     Dosage: UNK, TID
  14. BENSERAZIDE [Suspect]
     Active Substance: BENSERAZIDE
     Dosage: UNK, TID
  15. EMTRICITABINE [Suspect]
     Active Substance: EMTRICITABINE
     Indication: Prophylaxis against HIV infection
     Dosage: UNK
  16. EMTRICITABINE [Suspect]
     Active Substance: EMTRICITABINE
     Dosage: UNK
     Route: 065
  17. TENOFOVIR ALAFENAMIDE [Suspect]
     Active Substance: TENOFOVIR ALAFENAMIDE
     Indication: Prophylaxis against HIV infection
     Dosage: UNK
  18. TENOFOVIR ALAFENAMIDE [Suspect]
     Active Substance: TENOFOVIR ALAFENAMIDE
     Dosage: UNK
     Route: 065
  19. ATORVASTATIN [Concomitant]
     Active Substance: ATORVASTATIN
     Indication: Hypercholesterolaemia
     Dosage: 80 MILLIGRAM, QD
  20. ATORVASTATIN [Concomitant]
     Active Substance: ATORVASTATIN
     Dosage: 80 MILLIGRAM, QD
     Route: 065
  21. DIAZEPAM [Concomitant]
     Active Substance: DIAZEPAM
     Indication: Anxiety
     Dosage: 5 MILLIGRAM, QD
  22. DIAZEPAM [Concomitant]
     Active Substance: DIAZEPAM
     Dosage: 5 MILLIGRAM, QD
  23. FENOFIBRATE [Concomitant]
     Active Substance: FENOFIBRATE
     Indication: Hypercholesterolaemia
     Dosage: 145 MILLIGRAM, QD
  24. FENOFIBRATE [Concomitant]
     Active Substance: FENOFIBRATE
     Dosage: 145 MILLIGRAM, QD
  25. INSULIN GLARGINE [Concomitant]
     Active Substance: INSULIN GLARGINE
     Indication: Type 2 diabetes mellitus
     Dosage: 30 INTERNATIONAL UNIT, QD
  26. ACETAMINOPHEN [Concomitant]
     Active Substance: ACETAMINOPHEN
     Indication: Cervical spinal stenosis
     Dosage: UNK
  27. ACETAMINOPHEN [Concomitant]
     Active Substance: ACETAMINOPHEN
     Indication: Spinal osteoarthritis
     Dosage: UNK
  28. ACETAMINOPHEN [Concomitant]
     Active Substance: ACETAMINOPHEN
     Indication: Pain
  29. TIOTROPIUM [Concomitant]
     Active Substance: TIOTROPIUM
     Indication: Chronic obstructive pulmonary disease
     Dosage: 2.5 MICROGRAM, QD
  30. TIOTROPIUM [Concomitant]
     Active Substance: TIOTROPIUM
     Dosage: 2.5 MICROGRAM, QD
  31. TEMAZEPAM [Concomitant]
     Active Substance: TEMAZEPAM
     Indication: Chronic hepatitis B
     Dosage: UNK
  32. TEMAZEPAM [Concomitant]
     Active Substance: TEMAZEPAM
     Dosage: UNK
  33. QUETIAPINE [Concomitant]
     Active Substance: QUETIAPINE
  34. BUDESONIDE\FORMOTEROL [Concomitant]
     Active Substance: BUDESONIDE\FORMOTEROL

REACTIONS (5)
  - Acute kidney injury [Recovered/Resolved]
  - Nephropathy toxic [Unknown]
  - Starvation ketoacidosis [Recovering/Resolving]
  - Constipation [Unknown]
  - Dehydration [Unknown]
